FAERS Safety Report 6520739-1 (Version None)
Quarter: 2009Q4

REPORT INFORMATION
  Report Type: 
  Country: None (occurrence: None)
  Receive Date: 20091229
  Receipt Date: 20091221
  Transmission Date: 20100525
  Serious: Yes (Hospitalization, Disabling)
  Sender: FDA-Public Use
  Company Number: GXKR2009RO13744

PATIENT
  Sex: Male

DRUGS (5)
  1. OMNITROPE [Suspect]
     Indication: GROWTH RETARDATION
     Dosage: 0.3 MG (1.5 ML)/DAY
     Route: 058
     Dates: start: 20090522, end: 20091005
  2. EPOGEN [Concomitant]
     Dosage: 2000 IU/WEEK
     Route: 058
     Dates: start: 20070814
  3. ALPHA D3 [Concomitant]
     Dosage: 0.25 UG/DAY
     Route: 048
     Dates: start: 20070814
  4. FERRUM HAUSMANN [Concomitant]
     Dosage: 8 DRP, TID
     Route: 048
     Dates: start: 20070814
  5. CALCIUM CARBONATE [Concomitant]
     Dosage: 1 G, TID
     Route: 048
     Dates: start: 20070814

REACTIONS (1)
  - OSTEONECROSIS [None]
